FAERS Safety Report 11330581 (Version 2)
Quarter: 2015Q3

REPORT INFORMATION
  Report Type: Spontaneous
  Country: CA (occurrence: CA)
  Receive Date: 20150803
  Receipt Date: 20150918
  Transmission Date: 20151125
  Serious: Yes (Other)
  Sender: FDA-Public Use
  Company Number: CA-SA-2015SA110700

PATIENT
  Age: 35 Year
  Sex: Female

DRUGS (5)
  1. TAMOXIFEN [Suspect]
     Active Substance: TAMOXIFEN
     Route: 065
  2. TAXOTERE [Suspect]
     Active Substance: DOCETAXEL
     Dosage: SOLUTION?INTRAVENOUS
     Route: 042
  3. KADCYLA [Suspect]
     Active Substance: ADO-TRASTUZUMAB EMTANSINE
     Dosage: POWDER FOR?SOLUTION?INTRAVENOUS
     Route: 042
  4. TRASTUZUMAB [Suspect]
     Active Substance: TRASTUZUMAB
     Dosage: FORM: POWDER FOR SOLUTION
     Route: 042
  5. PENICILLIN [Concomitant]
     Active Substance: PENICILLIN

REACTIONS (6)
  - Hyperchlorhydria [Unknown]
  - Mobility decreased [Unknown]
  - Muscle spasms [Unknown]
  - Pain [Unknown]
  - Pharyngitis streptococcal [Unknown]
  - Disease progression [Unknown]
